FAERS Safety Report 7414597-0 (Version None)
Quarter: 2011Q2

REPORT INFORMATION
  Report Type: 
  Country: None (occurrence: None)
  Receive Date: 20110406
  Receipt Date: 20110322
  Transmission Date: 20111010
  Serious: Yes (Hospitalization)
  Sender: FDA-Public Use
  Company Number: 2011US000033

PATIENT
  Age: 62 Year
  Sex: Male

DRUGS (4)
  1. METOPROLOL [Concomitant]
  2. GUAIFENESIN [Concomitant]
  3. HYDROMORPHONE [Concomitant]
  4. ENTEREG [Suspect]
     Indication: POSTOPERATIVE ILEUS
     Dosage: 12 MG;PO
     Route: 048
     Dates: start: 20110316

REACTIONS (1)
  - SMALL INTESTINAL OBSTRUCTION [None]
